FAERS Safety Report 9387456 (Version 2)
Quarter: 2013Q3

REPORT INFORMATION
  Report Type: Report from Study
  Country: US (occurrence: US)
  Receive Date: 20130708
  Receipt Date: 20130819
  Transmission Date: 20140515
  Serious: Yes (Death)
  Sender: FDA-Public Use
  Company Number: US-ALEXION PHARMACEUTICALS INC.-A201301535

PATIENT
  Age: 73 Year
  Sex: Female
  Weight: 76.9 kg

DRUGS (8)
  1. SOLIRIS [Suspect]
     Indication: HAEMOLYTIC URAEMIC SYNDROME
     Dosage: 1200 MG, UNK
     Route: 042
     Dates: start: 20121115, end: 20131129
  2. ADALAT [Concomitant]
     Dosage: UNK
     Dates: start: 20121102
  3. BUMETANIDE [Concomitant]
     Dosage: UNK
     Dates: start: 20121129
  4. HYDRALAZINE [Concomitant]
     Dosage: UNK
     Dates: start: 20121212
  5. INSULIN LISPRO [Concomitant]
     Dosage: UNK
     Dates: start: 20121023
  6. METOLAZONE [Concomitant]
     Dosage: UNK
     Dates: start: 20121212
  7. METOPROLOL [Concomitant]
     Dosage: UNK
     Dates: start: 20121106
  8. OMEPRAZOLE [Concomitant]
     Dosage: UNK

REACTIONS (1)
  - Malignant neoplasm progression [Fatal]
